FAERS Safety Report 4622853-4 (Version None)
Quarter: 2005Q1

REPORT INFORMATION
  Report Type: 
  Country: None (occurrence: None)
  Receive Date: 20050330
  Receipt Date: 20050316
  Transmission Date: 20050727
  Serious: Yes (Other)
  Sender: FDA-Public Use
  Company Number: MW-GLAXOSMITHKLINE-B0374989A

PATIENT
  Age: 27 Year
  Sex: Female

DRUGS (2)
  1. COMBIVIR [Suspect]
     Indication: ANTIVIRAL PROPHYLAXIS
     Dosage: 1TAB TWICE PER DAY
     Route: 048
  2. NEVIRAPINE [Suspect]
     Indication: ANTIVIRAL PROPHYLAXIS
     Dosage: 200MG SEE DOSAGE TEXT
     Route: 048

REACTIONS (7)
  - ANGIONEUROTIC OEDEMA [None]
  - CONJUNCTIVITIS [None]
  - MYALGIA [None]
  - NEUTROPENIA [None]
  - OEDEMA [None]
  - PYREXIA [None]
  - SKIN TOXICITY [None]
